FAERS Safety Report 4399587-7 (Version None)
Quarter: 2004Q3

REPORT INFORMATION
  Report Type: 
  Country: None (occurrence: None)
  Receive Date: 20040716
  Receipt Date: 20040603
  Transmission Date: 20050211
  Serious: Yes (Hospitalization)
  Sender: FDA-Public Use
  Company Number: DE-MERCK-0406DEU00056

PATIENT
  Age: 58 Year
  Sex: Female
  Weight: 99 kg

DRUGS (13)
  1. DIGITOXIN [Concomitant]
     Route: 065
     Dates: start: 20001201
  2. FUROSEMIDE [Concomitant]
     Indication: HYPERTENSION
     Route: 048
     Dates: start: 20000601
  3. FUROSEMIDE [Concomitant]
     Indication: CARDIAC FAILURE CONGESTIVE
     Route: 048
     Dates: start: 20000601
  4. IBUPROFEN [Concomitant]
     Route: 048
  5. IBUPROFEN [Concomitant]
     Route: 048
  6. INSULIN LISPRO, BIPHASIC ISOPHANE [INJECTION] [Concomitant]
     Indication: DIABETES MELLITUS
     Route: 065
     Dates: start: 19980601
  7. METHOTREXATE [Concomitant]
     Route: 048
  8. METOPROLOL [Concomitant]
     Route: 065
     Dates: start: 20010501
  9. NITRENDIPINE [Concomitant]
     Indication: HYPERTENSION
     Route: 065
     Dates: start: 20020301
  10. QUINAPRIL HYDROCHLORIDE [Concomitant]
     Route: 065
     Dates: start: 20010501
  11. VIOXX [Suspect]
     Indication: SPONDYLOSIS
     Route: 048
     Dates: start: 20040303, end: 20040517
  12. VIOXX [Suspect]
     Route: 048
     Dates: start: 20040303, end: 20040517
  13. TRAMADOL HYDROCHLORIDE [Concomitant]
     Route: 065

REACTIONS (2)
  - RENAL FAILURE [None]
  - VARICOSE VEIN [None]
